FAERS Safety Report 6260439-9 (Version None)
Quarter: 2009Q3

REPORT INFORMATION
  Report Type: 
  Country: None (occurrence: None)
  Receive Date: 20090708
  Receipt Date: 20090629
  Transmission Date: 20100115
  Serious: Yes (Disabling, Other)
  Sender: FDA-Public Use
  Company Number: FR-ABBOTT-08P-056-0444695-00

PATIENT
  Sex: Female
  Weight: 68 kg

DRUGS (5)
  1. HUMIRA [Suspect]
     Indication: RHEUMATOID ARTHRITIS
     Route: 058
     Dates: start: 20040601, end: 20070921
  2. TILCOTIL [Concomitant]
     Indication: RHEUMATOID ARTHRITIS
     Dates: start: 20050620
  3. EUPANTOL [Concomitant]
     Indication: GASTRITIS
     Dates: start: 20050620
  4. CORTANCYL [Concomitant]
     Indication: RHEUMATOID ARTHRITIS
     Dates: start: 20040312
  5. COMMERCIAL HUMIRA [Concomitant]
     Indication: RHEUMATOID ARTHRITIS
     Route: 058
     Dates: start: 20031111

REACTIONS (1)
  - OPTIC ISCHAEMIC NEUROPATHY [None]
